FAERS Safety Report 13385763 (Version 1)
Quarter: 2017Q1

REPORT INFORMATION
  Report Type: Spontaneous
  Country: US (occurrence: US)
  Receive Date: 20170330
  Receipt Date: 20170330
  Transmission Date: 20170429
  Serious: Yes (Other)
  Sender: FDA-Public Use
  Company Number: US-ELI_LILLY_AND_COMPANY-US201608000458

PATIENT
  Sex: Female

DRUGS (9)
  1. CYMBALTA [Suspect]
     Active Substance: DULOXETINE HYDROCHLORIDE
     Indication: ANXIETY
     Dosage: 30 MG, QD
     Route: 048
  2. CYMBALTA [Suspect]
     Active Substance: DULOXETINE HYDROCHLORIDE
     Dosage: 90 MG, QD
     Route: 048
  3. CYMBALTA [Suspect]
     Active Substance: DULOXETINE HYDROCHLORIDE
     Indication: DEPRESSIVE SYMPTOM
     Dosage: 60 MG, QD
     Route: 048
  4. CYMBALTA [Suspect]
     Active Substance: DULOXETINE HYDROCHLORIDE
     Dosage: 60 MG, QD
     Route: 048
     Dates: end: 20150606
  5. CYMBALTA [Suspect]
     Active Substance: DULOXETINE HYDROCHLORIDE
     Dosage: 30 MG, QD
     Route: 048
     Dates: end: 20150511
  6. CYMBALTA [Suspect]
     Active Substance: DULOXETINE HYDROCHLORIDE
     Dosage: 90 MG, QD
     Route: 048
  7. LEXAPRO [Suspect]
     Active Substance: ESCITALOPRAM OXALATE
     Indication: PRODUCT USED FOR UNKNOWN INDICATION
     Dosage: UNK, UNKNOWN
     Route: 065
  8. CYMBALTA [Suspect]
     Active Substance: DULOXETINE HYDROCHLORIDE
     Dosage: 120 MG, QD
     Route: 048
  9. CYMBALTA [Suspect]
     Active Substance: DULOXETINE HYDROCHLORIDE
     Dosage: 30 MG, QD
     Route: 048
     Dates: start: 20150516

REACTIONS (46)
  - Drug withdrawal syndrome [Unknown]
  - Insomnia [Unknown]
  - Hepatic cyst [Unknown]
  - Libido disorder [Unknown]
  - Abnormal behaviour [Unknown]
  - Blood cholesterol increased [Unknown]
  - Hypertension [Unknown]
  - Arthralgia [Unknown]
  - Confusional state [Unknown]
  - Hypomania [Unknown]
  - Injury [Unknown]
  - Nausea [Unknown]
  - Anger [Unknown]
  - Myalgia [Unknown]
  - Restless legs syndrome [Unknown]
  - Diarrhoea [Unknown]
  - Tinnitus [Unknown]
  - Irritability [Unknown]
  - Anxiety [Unknown]
  - Sleep disorder [Unknown]
  - Headache [Unknown]
  - Nervousness [Unknown]
  - Dysphoria [Unknown]
  - Vomiting [Unknown]
  - Memory impairment [Unknown]
  - Soliloquy [Unknown]
  - Agitation [Unknown]
  - Nightmare [Unknown]
  - Lethargy [Unknown]
  - Suicidal ideation [Unknown]
  - Disturbance in attention [Unknown]
  - Anhedonia [Unknown]
  - Tremor [Unknown]
  - Weight increased [Unknown]
  - Affect lability [Unknown]
  - Visual impairment [Unknown]
  - Back pain [Unknown]
  - Dizziness [Unknown]
  - Drug ineffective [Unknown]
  - Asthenia [Unknown]
  - Lung neoplasm [Unknown]
  - Fear [Unknown]
  - Fatigue [Unknown]
  - Judgement impaired [Unknown]
  - Hyperhidrosis [Unknown]
  - Vertigo [Unknown]
